FAERS Safety Report 7539668-X (Version None)
Quarter: 2011Q2

REPORT INFORMATION
  Report Type: 
  Country: None (occurrence: None)
  Receive Date: 20110610
  Receipt Date: 20110531
  Transmission Date: 20111010
  Serious: Yes (Death, Life-Threatening, Other)
  Sender: FDA-Public Use
  Company Number: JP-MPIJNJ-2011-01443

PATIENT

DRUGS (14)
  1. VELCADE [Suspect]
     Dosage: 1.4 MG, 1/WEEK
     Route: 042
     Dates: start: 20110329, end: 20110401
  2. VELCADE [Suspect]
     Indication: MULTIPLE MYELOMA
     Dosage: 1.4 MG, 2/WEEK
     Route: 042
     Dates: start: 20110308, end: 20110318
  3. LASIX [Concomitant]
     Dosage: 20 MG, UNK
     Route: 048
     Dates: start: 20110318, end: 20110329
  4. SALIGREN [Concomitant]
     Dosage: 30 MG, UNK
     Route: 048
  5. PRIMPERAN                          /00041901/ [Concomitant]
     Dosage: 15 MG, UNK
     Route: 048
     Dates: start: 20110311, end: 20110315
  6. AMBISOME [Concomitant]
     Dosage: 50 MG, UNK
     Dates: start: 20110308, end: 20110309
  7. SLOW-K [Concomitant]
     Dosage: 600 MG, UNK
     Route: 048
     Dates: start: 20110324, end: 20110330
  8. KYTRIL [Concomitant]
     Dosage: 3 MG, UNK
     Route: 042
     Dates: start: 20110308, end: 20110401
  9. CEFAZOLIN SODIUM [Concomitant]
     Dosage: 3 G, UNK
     Route: 048
     Dates: start: 20110328, end: 20110404
  10. OMEPRAZOLE [Concomitant]
     Dosage: 20 MG, UNK
     Route: 048
     Dates: start: 20110308
  11. SULFAMETHOXAZOLE [Concomitant]
     Dosage: 4 DF, UNK
     Route: 048
     Dates: start: 20110222
  12. ASPARA-L [Concomitant]
     Dosage: 900 MG, UNK
     Route: 048
     Dates: start: 20110309, end: 20110315
  13. ALLOPURINOL [Concomitant]
     Dosage: 50 MG, UNK
     Route: 048
     Dates: start: 20110311, end: 20110322
  14. DEXART [Concomitant]
     Dosage: 10 MG, UNK
     Route: 042
     Dates: start: 20110308

REACTIONS (3)
  - CARDIAC FAILURE [None]
  - INTERSTITIAL LUNG DISEASE [None]
  - DEATH [None]
